FAERS Safety Report 8765678 (Version 1)
Quarter: 2012Q4

REPORT INFORMATION
  Report Type: Report from Study
  Country: US (occurrence: US)
  Receive Date: 20120904
  Receipt Date: 20120904
  Transmission Date: 20130627
  Serious: Yes (Death, Hospitalization)
  Sender: FDA-Public Use
  Company Number: US-JNJFOC-20120815090

PATIENT
  Sex: Male

DRUGS (1)
  1. ZYTIGA [Suspect]
     Indication: PROSTATE CANCER STAGE IV
     Dosage: strength: 250mg
     Route: 048
     Dates: start: 201205, end: 2012

REACTIONS (4)
  - Hepatic failure [Fatal]
  - Disease progression [Fatal]
  - Adverse drug reaction [Unknown]
  - Drug ineffective [Unknown]
